FAERS Safety Report 7046799-X (Version None)
Quarter: 2010Q4

REPORT INFORMATION
  Report Type: 
  Country: None (occurrence: None)
  Receive Date: 20101015
  Receipt Date: 20101007
  Transmission Date: 20110411
  Serious: Yes (Hospitalization, Other)
  Sender: FDA-Public Use
  Company Number: CA-ROXANE LABORATORIES, INC.-2010-RO-01331RO

PATIENT
  Age: 49 Year
  Sex: Male

DRUGS (3)
  1. RISPERIDONE [Suspect]
     Indication: BIPOLAR DISORDER
  2. LITHIUM CARBONATE [Suspect]
     Indication: BIPOLAR DISORDER
  3. CARBAMAZEPINE [Suspect]
     Indication: BIPOLAR DISORDER

REACTIONS (2)
  - ANTIPSYCHOTIC DRUG LEVEL ABOVE THERAPEUTIC [None]
  - ELECTROCARDIOGRAM ABNORMAL [None]
